FAERS Safety Report 19148779 (Version 2)
Quarter: 2021Q2

REPORT INFORMATION
  Report Type: Report from Study
  Country: CO (occurrence: CO)
  Receive Date: 20210416
  Receipt Date: 20210510
  Transmission Date: 20210717
  Serious: Yes (Other)
  Sender: FDA-Public Use
  Company Number: CO-JNJFOC-20210418138

PATIENT
  Age: 58 Year
  Sex: Female
  Weight: 90 kg

DRUGS (2)
  1. BOSENTAN. [Suspect]
     Active Substance: BOSENTAN
     Indication: PULMONARY ARTERIAL HYPERTENSION
     Route: 048
     Dates: start: 20191224
  2. BOSENTAN. [Suspect]
     Active Substance: BOSENTAN
     Route: 048
     Dates: start: 20120505

REACTIONS (7)
  - Lacrimation increased [Not Recovered/Not Resolved]
  - Eye haemorrhage [Not Recovered/Not Resolved]
  - Pterygium [Not Recovered/Not Resolved]
  - Epistaxis [Not Recovered/Not Resolved]
  - Anaemia [Not Recovered/Not Resolved]
  - Visual impairment [Not Recovered/Not Resolved]
  - Dizziness [Not Recovered/Not Resolved]

NARRATIVE: CASE EVENT DATE: 20210320
